FAERS Safety Report 24043007 (Version 3)
Quarter: 2024Q3

REPORT INFORMATION
  Report Type: Spontaneous
  Country: JP (occurrence: JP)
  Receive Date: 20240702
  Receipt Date: 20240930
  Transmission Date: 20241017
  Serious: Yes (Hospitalization, Other)
  Sender: PFIZER
  Company Number: JP-PFIZER INC-PV202400074412

PATIENT
  Age: 77 Year
  Sex: Female
  Weight: 47.7 kg

DRUGS (28)
  1. ELREXFIO [Suspect]
     Active Substance: ELRANATAMAB-BCMM
     Indication: Plasma cell myeloma
     Dosage: 12 MG, SINGLE
     Route: 058
     Dates: start: 20240603
  2. CALCIUM CARBONATE\CHOLECALCIFEROL\MAGNESIUM CARBONATE [Concomitant]
     Active Substance: CALCIUM CARBONATE\CHOLECALCIFEROL\MAGNESIUM CARBONATE
     Indication: Hypocalcaemia
     Dosage: 3 DF, DAILY, CHEWABLE COMBINATION TABLETS, ADMINISTERED WITHIN 2 WEEKS PRIOR TO THE EVENT ONSET (FRO
  3. ZOVIRAX [Concomitant]
     Active Substance: ACYCLOVIR
     Indication: Infection prophylaxis
     Dosage: 1 DF, DAILY, ADMINISTERED WITHIN 2 WEEKS PRIOR TO THE EVENT ONSET (FROM 21MAY2024 TO 04JUN2024)
  4. BIO-THREE [Concomitant]
     Active Substance: HERBALS
     Indication: Constipation
     Dosage: 6 DF, DAILY, ADMINISTERED WITHIN 2 WEEKS PRIOR TO THE EVENT ONSET (FROM 21MAY2024 TO 04JUN2024)
  5. VONOPRAZAN FUMARATE [Concomitant]
     Active Substance: VONOPRAZAN FUMARATE
     Indication: Gastrooesophageal reflux disease
     Dosage: 1 DF, DAILY, ADMINISTERED WITHIN 2 WEEKS PRIOR TO THE EVENT ONSET (FROM 21MAY2024 TO 04JUN2024)
  6. ATOVAQUONE [Concomitant]
     Active Substance: ATOVAQUONE
     Indication: Prophylaxis
     Dosage: 2 DF, DAILY, 750 MG/5 ML/SACHET, ADMINISTERED WITHIN 2 WEEKS PRIOR TO THE EVENT ONSET (FROM 21MAY202
  7. PRAVASTATIN SODIUM [Concomitant]
     Active Substance: PRAVASTATIN SODIUM
     Indication: Hypercholesterolaemia
     Dosage: 1 DF, DAILY, ADMINISTERED WITHIN 2 WEEKS PRIOR TO THE EVENT ONSET (FROM 21MAY2024 TO 04JUN2024)
  8. AZILSARTAN KAMEDOXOMIL [Concomitant]
     Active Substance: AZILSARTAN KAMEDOXOMIL
     Indication: Hypertension
     Dosage: 1 DF, DAILY, ADMINISTERED WITHIN 2 WEEKS PRIOR TO THE EVENT ONSET (FROM 21MAY2024 TO 04JUN2024)
  9. POTASSIUM ASPARTATE [Concomitant]
     Active Substance: POTASSIUM ASPARTATE
     Indication: Hypokalaemia
     Dosage: 6 DF, DAILY, ADMINISTERED WITHIN 2 WEEKS PRIOR TO THE EVENT ONSET (FROM 21MAY2024 TO 29MAY2024)
     Dates: end: 20240529
  10. POTASSIUM ASPARTATE [Concomitant]
     Active Substance: POTASSIUM ASPARTATE
     Dosage: 2 DF, DAILY
     Dates: start: 20240530, end: 20240530
  11. SODIUM PHOSPHATE, DIBASIC\SODIUM PHOSPHATE, MONOBASIC [Concomitant]
     Active Substance: SODIUM PHOSPHATE, DIBASIC\SODIUM PHOSPHATE, MONOBASIC
     Indication: Hypophosphataemia
     Dosage: 6 DF, DAILY, 100 MG/SACHET, ADMINISTERED WITHIN 2 WEEKS PRIOR TO THE EVENT ONSET (FROM 21MAY2024 TO
     Dates: end: 20240529
  12. SODIUM PHOSPHATE, DIBASIC\SODIUM PHOSPHATE, MONOBASIC [Concomitant]
     Active Substance: SODIUM PHOSPHATE, DIBASIC\SODIUM PHOSPHATE, MONOBASIC
     Dosage: 2 DF, DAILY, 100 MG/SACHET
     Dates: start: 20240530, end: 20240530
  13. EDOXABAN TOSYLATE [Concomitant]
     Active Substance: EDOXABAN TOSYLATE
     Indication: Deep vein thrombosis
     Dosage: 1 DF, DAILY, ADMINISTERED WITHIN 2 WEEKS PRIOR TO THE EVENT ONSET (FROM 21MAY2024 TO 04JUN2024)
  14. CRESEMBA [Concomitant]
     Active Substance: ISAVUCONAZONIUM SULFATE
     Indication: Bronchopulmonary aspergillosis
     Dosage: 2 DF, DAILY, ADMINISTERED WITHIN 2 WEEKS PRIOR TO THE EVENT ONSET (FROM 21MAY2024 TO 04JUN2024)
  15. MOVICOL [Concomitant]
     Active Substance: POLYETHYLENE GLYCOL 3350\POTASSIUM CHLORIDE\SODIUM BICARBONATE\SODIUM CHLORIDE
     Indication: Constipation
     Dosage: 2 DF, DAILY, COMBINATION POWDER, LD 6.8523 G/SACHET
     Dates: start: 20240527, end: 20240529
  16. MOVICOL [Concomitant]
     Active Substance: POLYETHYLENE GLYCOL 3350\POTASSIUM CHLORIDE\SODIUM BICARBONATE\SODIUM CHLORIDE
     Dosage: 4 DF, DAILY, COMBINATION POWDER, LD 6.8523 G/SACHET, ADMINISTERED WITHIN 2 WEEKS PRIOR TO THE EVENT
     Dates: start: 20240530
  17. HERBALS [Concomitant]
     Active Substance: HERBALS
     Indication: Constipation
     Dosage: 2 DF, DAILY, 2.5 G SACHET
     Dates: start: 20240531, end: 20240531
  18. LINZESS [Concomitant]
     Active Substance: LINACLOTIDE
     Indication: Constipation
     Dosage: 2 DF, DAILY, ADMINISTERED WITHIN 2 WEEKS PRIOR TO THE EVENT ONSET (FROM 02JUN2024 TO 04JUN2024)
     Dates: start: 20240602
  19. FEBUXOSTAT [Concomitant]
     Active Substance: FEBUXOSTAT
     Indication: Hyperuricaemia
     Dosage: 2 DF, DAILY, ADMINISTERED WITHIN 2 WEEKS PRIOR TO THE EVENT ONSET (FROM 01JUN2024 TO 04JUN2024)
     Dates: start: 20240601
  20. CALONAL [Concomitant]
     Active Substance: ACETAMINOPHEN
     Indication: Pyrexia
     Dosage: 1 DF, DAILY
     Dates: start: 20240601, end: 20240602
  21. CALONAL [Concomitant]
     Active Substance: ACETAMINOPHEN
     Dosage: 5 DF PRESCRIBED FOR AS NEEDED USE
     Dates: start: 20240603, end: 20240603
  22. DEXAMETHASONE SODIUM PHOSPHATE [Concomitant]
     Active Substance: DEXAMETHASONE PHOSPHATE\DEXAMETHASONE SODIUM PHOSPHATE
     Indication: Plasma cell myeloma
     Dosage: 16.5 MG, DAILY
     Dates: start: 20240530, end: 20240603
  23. PANTETHINE [Concomitant]
     Active Substance: PANTETHINE
     Indication: Vitamin supplementation
     Dosage: 200 MG, DAILY, ADMINISTERED WITHIN 2 WEEKS PRIOR TO THE EVENT ONSET (FROM 30MAY2024 TO 04JUN2024)
     Dates: start: 20240530
  24. CEFMETAZOLE SODIUM [Concomitant]
     Active Substance: CEFMETAZOLE SODIUM
     Indication: Pyrexia
     Dosage: 1 G, DAILY, INTRAVENOUS INJECTION, ADMINISTERED WITHIN 2 WEEKS PRIOR TO THE EVENT ONSET (FROM 01JUN2
     Dates: start: 20240601
  25. POLARAMINE [Concomitant]
     Active Substance: DEXCHLORPHENIRAMINE MALEATE
     Indication: Allergy prophylaxis
     Dosage: 5 MG, DAILY, 1 ML
     Dates: start: 20240603, end: 20240603
  26. HYDROMORPHONE HYDROCHLORIDE [Concomitant]
     Active Substance: HYDROMORPHONE HYDROCHLORIDE
     Indication: Cancer pain
     Dosage: 1 DF, DAILY
     Dates: start: 20240603, end: 20240603
  27. HYDROMORPHONE HYDROCHLORIDE [Concomitant]
     Active Substance: HYDROMORPHONE HYDROCHLORIDE
     Indication: Cancer pain
     Dosage: 5 DF FOR 5 TIMES, DAILY, FOR AS NEEDED USE
     Dates: start: 20240603, end: 20240603
  28. HYDROMORPHONE HYDROCHLORIDE [Concomitant]
     Active Substance: HYDROMORPHONE HYDROCHLORIDE
     Dosage: 10 DF FOR 10 TIMES, DAILY, FOR AS NEEDED USE, ADMINISTERED WITHIN 2 WEEKS PRIOR TO THE EVENT ONSET (
     Dates: start: 20240604

REACTIONS (3)
  - Cytokine release syndrome [Recovering/Resolving]
  - Myocarditis [Unknown]
  - Neoplasm progression [Unknown]

NARRATIVE: CASE EVENT DATE: 20240605
